FAERS Safety Report 23347944 (Version 1)
Quarter: 2023Q4

REPORT INFORMATION
  Report Type: Spontaneous
  Country: US (occurrence: None)
  Receive Date: 20231228
  Receipt Date: 20231228
  Transmission Date: 20240110
  Serious: No
  Sender: FDA-Public Use
  Company Number: None

PATIENT
  Sex: Male

DRUGS (2)
  1. LENALIDOMIDE [Suspect]
     Active Substance: LENALIDOMIDE
     Indication: Plasma cell myeloma
     Dosage: 5MG ONCE DAILY FOR 21 DAYS BY MOUTH
     Route: 048
     Dates: start: 202303
  2. ENTECAVIR [Concomitant]
     Active Substance: ENTECAVIR

REACTIONS (2)
  - Decreased appetite [None]
  - Taste disorder [None]
